FAERS Safety Report 25128581 (Version 2)
Quarter: 2025Q2

REPORT INFORMATION
  Report Type: Spontaneous
  Country: US (occurrence: US)
  Receive Date: 20250327
  Receipt Date: 20250409
  Transmission Date: 20250717
  Serious: Yes (Death, Other)
  Sender: ROCHE
  Company Number: US-ROCHE-10000242601

PATIENT
  Sex: Female

DRUGS (4)
  1. ITOVEBI [Suspect]
     Active Substance: INAVOLISIB
     Indication: Product used for unknown indication
     Route: 065
     Dates: start: 20241224
  2. ITOVEBI [Suspect]
     Active Substance: INAVOLISIB
     Route: 065
     Dates: start: 20250210
  3. LETROZOLE [Concomitant]
     Active Substance: LETROZOLE
  4. METFORMIN HYDROCHLORIDE [Concomitant]
     Active Substance: METFORMIN HYDROCHLORIDE
     Dates: start: 20250106

REACTIONS (4)
  - Diabetic ketoacidosis [Recovered/Resolved]
  - Stomatitis [Recovered/Resolved]
  - Diarrhoea [Recovered/Resolved]
  - Breast cancer [Fatal]
